FAERS Safety Report 9784139 (Version 3)
Quarter: 2014Q1

REPORT INFORMATION
  Report Type: Spontaneous
  Country: IT (occurrence: IT)
  Receive Date: 20131226
  Receipt Date: 20140213
  Transmission Date: 20141002
  Serious: Yes (Death)
  Sender: FDA-Public Use
  Company Number: IT-TEVA-452361ISR

PATIENT
  Age: 45 Year
  Sex: Female

DRUGS (5)
  1. LEVOFLOXACINA TEVA [Suspect]
     Indication: PRODUCT USED FOR UNKNOWN INDICATION
     Dosage: 500 MILLIGRAM DAILY;
     Route: 048
     Dates: start: 20131119, end: 20131120
  2. LEVOFLOXACINA TEVA [Interacting]
     Dates: start: 20131127, end: 20131129
  3. ALLOPURINOL [Interacting]
     Indication: PRODUCT USED FOR UNKNOWN INDICATION
     Dosage: 300 MILLIGRAM DAILY;
     Route: 048
     Dates: start: 20131104, end: 20131120
  4. PIPERACILLIN + TAZOBACTAM [Concomitant]
     Indication: PRODUCT USED FOR UNKNOWN INDICATION
     Route: 042
     Dates: start: 20131120, end: 20131127
  5. METRONIDAZOLE [Concomitant]
     Indication: PRODUCT USED FOR UNKNOWN INDICATION
     Dates: start: 20131120, end: 20131126

REACTIONS (2)
  - Toxic epidermal necrolysis [Fatal]
  - Drug interaction [Unknown]
